FAERS Safety Report 18257149 (Version 2)
Quarter: 2020Q4

REPORT INFORMATION
  Report Type: Report from Study
  Country: BR (occurrence: BR)
  Receive Date: 20200911
  Receipt Date: 20201205
  Transmission Date: 20210113
  Serious: Yes (Other)
  Sender: FDA-Public Use
  Company Number: NVSC2020BR244491

PATIENT
  Sex: Female
  Weight: 78 kg

DRUGS (8)
  1. LIXIANA [Concomitant]
     Active Substance: EDOXABAN TOSYLATE
     Indication: PROPHYLAXIS
     Dosage: 1 DF, QD (IN THE MORNING) (STARTED ABOUT 1 YEAR AGO)
     Route: 048
  2. METOPROLOL. [Concomitant]
     Active Substance: METOPROLOL
     Indication: CARDIAC FAILURE
     Dosage: 1 DF, BID (STARTED APPROXIMATELY ONE YEAR AGO)
     Route: 048
  3. FUROSEMIDE. [Suspect]
     Active Substance: FUROSEMIDE
     Indication: SWELLING
  4. ENTRESTO [Suspect]
     Active Substance: SACUBITRIL\VALSARTAN
     Dosage: 1 DF, QD (24/26MG DID NOT REMEMBER BUT IT WAS AFTER THE HOSPITALIZATION DISCHARGE (PNEUMONIA)) (STOP
     Route: 048
  5. FUROSEMIDE. [Suspect]
     Active Substance: FUROSEMIDE
     Indication: CHEST DISCOMFORT
     Dosage: 1 DF, QD (STARTED FIVE MONTHS AGO)
     Route: 048
  6. ENTRESTO [Suspect]
     Active Substance: SACUBITRIL\VALSARTAN
     Indication: CARDIAC FAILURE
     Dosage: 2 DF, Q12H (STARTED TWO MONTHS AGO)
     Route: 065
  7. ENTRESTO [Suspect]
     Active Substance: SACUBITRIL\VALSARTAN
     Dosage: 1 DF, BID (STARTED 5 MONTHS AGO)
     Route: 048
  8. SPIRONOLACTONE. [Concomitant]
     Active Substance: SPIRONOLACTONE
     Indication: CARDIAC FAILURE
     Dosage: 1 DF, BID (STARTED 8 MONTHS AGO)
     Route: 048

REACTIONS (2)
  - Weight decreased [Recovered/Resolved]
  - Fatigue [Recovered/Resolved]
